FAERS Safety Report 13738646 (Version 1)
Quarter: 2017Q3

REPORT INFORMATION
  Report Type: Report from Study
  Country: US (occurrence: US)
  Receive Date: 20170710
  Receipt Date: 20170710
  Transmission Date: 20171127
  Serious: Yes (Other)
  Sender: FDA-Public Use
  Company Number: US-SAOL THERAPEUTICS-2016SAO00458

PATIENT
  Age: 70 Year
  Sex: Male

DRUGS (12)
  1. FENTANYL. [Suspect]
     Active Substance: FENTANYL
     Dosage: 293.47 ?G, \DAY
     Route: 037
     Dates: end: 20160414
  2. FENTANYL. [Suspect]
     Active Substance: FENTANYL
     Dosage: 271.14 ?G, \DAY
     Dates: start: 20160329
  3. COMPOUNDED BACLOFEN [Suspect]
     Active Substance: BACLOFEN
     Indication: INTERVERTEBRAL DISC DEGENERATION
     Dosage: 293.47 ?G, \DAY
     Route: 037
     Dates: end: 20160414
  4. COMPOUNDED BACLOFEN [Suspect]
     Active Substance: BACLOFEN
     Dosage: 311.13 ?G, \DAY
     Route: 037
     Dates: start: 20160414
  5. COMPOUNDED BACLOFEN [Suspect]
     Active Substance: BACLOFEN
     Indication: SPINAL PAIN
     Dosage: 293.47 ?G, \DAY
     Route: 037
  6. FENTANYL. [Suspect]
     Active Substance: FENTANYL
     Dosage: 311.13 ?G, \DAY
     Route: 037
     Dates: start: 20160414
  7. CNS HYDRO (HYDROMORPHONE) [Suspect]
     Active Substance: HYDROMORPHONE
     Dosage: 1.699 MG, \DAY
     Route: 037
  8. CNS HYDRO (HYDROMORPHONE) [Suspect]
     Active Substance: HYDROMORPHONE
     Dosage: 1.699 MG, \DAY
     Route: 037
     Dates: end: 20160414
  9. CNS HYDRO (HYDROMORPHONE) [Suspect]
     Active Substance: HYDROMORPHONE
     Dosage: 1.802 MG, \DAY
     Route: 037
     Dates: start: 20160414
  10. CNS HYDRO (HYDROMORPHONE) [Suspect]
     Active Substance: HYDROMORPHONE
     Dosage: 1.602 MG, \DAY
     Dates: start: 20160329
  11. COMPOUNDED BACLOFEN [Suspect]
     Active Substance: BACLOFEN
     Dosage: 271.14 ?G, \DAY
     Route: 037
     Dates: start: 20160329
  12. FENTANYL. [Suspect]
     Active Substance: FENTANYL
     Dosage: 293.47 ?G, \DAY
     Route: 037

REACTIONS (6)
  - Nausea [Recovered/Resolved]
  - Off label use [Unknown]
  - Device failure [Recovered/Resolved]
  - Malaise [Recovered/Resolved]
  - Drug withdrawal syndrome [Recovered/Resolved]
  - Vomiting [Recovered/Resolved]

NARRATIVE: CASE EVENT DATE: 20160410
